FAERS Safety Report 7358990-3 (Version None)
Quarter: 2011Q1

REPORT INFORMATION
  Report Type: 
  Country: None (occurrence: None)
  Receive Date: 20110317
  Receipt Date: 20110307
  Transmission Date: 20110831
  Serious: Yes (Other)
  Sender: FDA-Public Use
  Company Number: IE-GILEAD-E2B_00000920

PATIENT
  Sex: Female
  Weight: 96 kg

DRUGS (13)
  1. FRUMIL [Concomitant]
     Route: 048
     Dates: start: 20101021
  2. TINZAPARIN [Concomitant]
     Route: 058
     Dates: start: 20101021, end: 20101103
  3. WARFARIN [Concomitant]
     Route: 048
     Dates: start: 20101102
  4. SYMBICORT [Concomitant]
     Route: 055
  5. SALBUTAMOL [Concomitant]
  6. MONTELUKAST SODIUM [Concomitant]
     Indication: ASTHMA
     Route: 048
  7. BOSENTAN [Concomitant]
     Route: 048
     Dates: start: 20101027
  8. LYRICA [Concomitant]
     Indication: NEURALGIA
  9. SILDENAFIL [Concomitant]
     Route: 048
     Dates: start: 20101029
  10. AMBRISENTAN [Suspect]
     Indication: PULMONARY ARTERIAL HYPERTENSION
     Route: 048
     Dates: start: 20101021, end: 20101026
  11. SOLIFENACIN SUCCINATE [Concomitant]
     Indication: BLADDER SPASM
     Route: 048
  12. ZESTORETIC [Concomitant]
     Indication: HYPERTENSION
     Route: 048
  13. ACETAMINOPHEN [Concomitant]
     Route: 048
     Dates: start: 20101020, end: 20101103

REACTIONS (3)
  - VISUAL IMPAIRMENT [None]
  - RASH [None]
  - VITREOUS DETACHMENT [None]
